FAERS Safety Report 25794094 (Version 1)
Quarter: 2025Q3

REPORT INFORMATION
  Report Type: Spontaneous
  Country: KR (occurrence: KR)
  Receive Date: 20250912
  Receipt Date: 20250912
  Transmission Date: 20251021
  Serious: Yes (Death, Hospitalization, Other)
  Sender: CELLTRION
  Company Number: KR-CELLTRION INC.-2025KR021955

PATIENT

DRUGS (32)
  1. TRUXIMA [Suspect]
     Active Substance: RITUXIMAB-ABBS
     Indication: Lymphoma
     Route: 042
     Dates: start: 20250421, end: 20250624
  2. TRUXIMA [Suspect]
     Active Substance: RITUXIMAB-ABBS
     Route: 042
     Dates: start: 20250421, end: 20250624
  3. TRUXIMA [Suspect]
     Active Substance: RITUXIMAB-ABBS
     Route: 042
     Dates: start: 20250421, end: 20250730
  4. TRUXIMA [Suspect]
     Active Substance: RITUXIMAB-ABBS
     Route: 042
     Dates: start: 20250421, end: 20250821
  5. ZANUBRUTINIB [Suspect]
     Active Substance: ZANUBRUTINIB
     Indication: Lymphoma
     Route: 048
     Dates: start: 20250422, end: 20250801
  6. ZANUBRUTINIB [Suspect]
     Active Substance: ZANUBRUTINIB
     Dates: start: 20250711, end: 20250714
  7. ZANUBRUTINIB [Suspect]
     Active Substance: ZANUBRUTINIB
     Dates: end: 20250730
  8. ZANUBRUTINIB [Suspect]
     Active Substance: ZANUBRUTINIB
     Dates: start: 20250818
  9. ZANUBRUTINIB [Suspect]
     Active Substance: ZANUBRUTINIB
     Route: 048
     Dates: start: 20250422, end: 20250828
  10. ZANUBRUTINIB [Suspect]
     Active Substance: ZANUBRUTINIB
     Dates: start: 20250821, end: 20250829
  11. CARBOPLATIN\ETOPOSIDE\IFOSFAMIDE [Suspect]
     Active Substance: CARBOPLATIN\ETOPOSIDE\IFOSFAMIDE
     Indication: Lymphoma
     Route: 042
     Dates: start: 20250422, end: 20250801
  12. CARBOPLATIN\ETOPOSIDE\IFOSFAMIDE [Suspect]
     Active Substance: CARBOPLATIN\ETOPOSIDE\IFOSFAMIDE
     Route: 042
     Dates: start: 20250422, end: 20250823
  13. PROPACETAMOL HYDROCHLORIDE [Concomitant]
     Active Substance: PROPACETAMOL HYDROCHLORIDE
     Indication: Pyrexia
     Route: 042
     Dates: start: 20250702
  14. PROPACETAMOL HYDROCHLORIDE [Concomitant]
     Active Substance: PROPACETAMOL HYDROCHLORIDE
     Route: 042
     Dates: start: 20250828, end: 20250828
  15. PROPACETAMOL HYDROCHLORIDE [Concomitant]
     Active Substance: PROPACETAMOL HYDROCHLORIDE
     Route: 042
     Dates: start: 20250829, end: 20250902
  16. PIPERACILLIN SODIUM\TAZOBACTAM SODIUM [Concomitant]
     Active Substance: PIPERACILLIN SODIUM\TAZOBACTAM SODIUM
     Indication: C-reactive protein increased
     Route: 042
     Dates: start: 20250703, end: 20250715
  17. PIPERACILLIN SODIUM\TAZOBACTAM SODIUM [Concomitant]
     Active Substance: PIPERACILLIN SODIUM\TAZOBACTAM SODIUM
     Indication: Infection
  18. LEVOFLOXACIN [Concomitant]
     Active Substance: LEVOFLOXACIN
     Indication: Infection
     Route: 042
     Dates: start: 20250707, end: 20250715
  19. LEVOFLOXACIN [Concomitant]
     Active Substance: LEVOFLOXACIN
     Route: 042
     Dates: start: 20250808
  20. ZYVOX [Concomitant]
     Active Substance: LINEZOLID
     Indication: Infection
     Dates: start: 20250707, end: 20250715
  21. PIPERACILLIN SODIUM\TAZOBACTAM SODIUM [Concomitant]
     Active Substance: PIPERACILLIN SODIUM\TAZOBACTAM SODIUM
     Indication: Infection
     Route: 042
     Dates: start: 20250808
  22. COMBICIN [Concomitant]
     Indication: Infection
     Route: 042
     Dates: start: 20250829, end: 20250829
  23. COMBICIN [Concomitant]
     Route: 042
     Dates: start: 20250830, end: 20250831
  24. LENOGRASTIM [Concomitant]
     Active Substance: LENOGRASTIM
     Indication: Neutropenia
     Route: 042
     Dates: start: 20250828, end: 20250828
  25. NORPIN [NOREPINEPHRINE BITARTRATE MONOHYDRATE] [Concomitant]
     Indication: Hypotension
     Dates: start: 20250828, end: 20250828
  26. NORPIN [NOREPINEPHRINE BITARTRATE MONOHYDRATE] [Concomitant]
     Route: 042
     Dates: start: 20250828, end: 20250903
  27. ACETAMINOPHEN [Concomitant]
     Active Substance: ACETAMINOPHEN
     Indication: Pain
     Route: 048
     Dates: start: 20250829, end: 20250831
  28. TRAMADOL HYDROCHLORIDE [Concomitant]
     Active Substance: TRAMADOL HYDROCHLORIDE
     Indication: Pain
     Route: 042
     Dates: start: 20250830, end: 20250830
  29. TRAMADOL HYDROCHLORIDE [Concomitant]
     Active Substance: TRAMADOL HYDROCHLORIDE
     Route: 042
     Dates: start: 20250831, end: 20250831
  30. DIGOXIN [Concomitant]
     Active Substance: DIGOXIN
     Indication: Arrhythmia
     Route: 042
     Dates: start: 20250901, end: 20250901
  31. VANCOMYCIN HYDROCHLORIDE [Concomitant]
     Active Substance: VANCOMYCIN HYDROCHLORIDE
     Indication: Infection
     Route: 042
     Dates: start: 20250901, end: 20250903
  32. REMIVA [Concomitant]
     Indication: Pain
     Route: 042
     Dates: start: 20250902, end: 20250903

REACTIONS (4)
  - Febrile neutropenia [Fatal]
  - Septic shock [Fatal]
  - Febrile neutropenia [Recovered/Resolved]
  - Febrile neutropenia [Not Recovered/Not Resolved]

NARRATIVE: CASE EVENT DATE: 20250702
